FAERS Safety Report 6786372-1 (Version None)
Quarter: 2010Q2

REPORT INFORMATION
  Report Type: 
  Country: None (occurrence: None)
  Receive Date: 20100623
  Receipt Date: 20100610
  Transmission Date: 20101027
  Serious: Yes (Other)
  Sender: FDA-Public Use
  Company Number: PHHY2010NL38704

PATIENT
  Sex: Female

DRUGS (3)
  1. ZOMETA [Suspect]
     Dosage: 4 MG/5ML, UNK
     Route: 042
  2. ZOMETA [Suspect]
     Dosage: 4 MG/5ML, UNK
     Route: 042
     Dates: start: 20100517
  3. ZOMETA [Suspect]
     Dosage: 4 MG/5ML, UNK
     Route: 042
     Dates: end: 20100610

REACTIONS (2)
  - DEMENTIA [None]
  - RENAL FAILURE [None]
